FAERS Safety Report 23398790 (Version 4)
Quarter: 2024Q1

REPORT INFORMATION
  Report Type: Spontaneous
  Country: US (occurrence: US)
  Receive Date: 20240112
  Receipt Date: 20240319
  Transmission Date: 20240410
  Serious: No
  Sender: FDA-Public Use
  Company Number: US-PFIZER INC-PV202400005200

PATIENT
  Age: 63 Year
  Sex: Female

DRUGS (2)
  1. INLYTA [Suspect]
     Active Substance: AXITINIB
     Dosage: UNK
     Dates: start: 20231226, end: 20231227
  2. INLYTA [Suspect]
     Active Substance: AXITINIB
     Dosage: UNK
     Dates: start: 20240110

REACTIONS (14)
  - COVID-19 [Unknown]
  - Feeling abnormal [Unknown]
  - Headache [Unknown]
  - Muscle spasms [Unknown]
  - Fatigue [Unknown]
  - Somnolence [Unknown]
  - Nausea [Unknown]
  - Hot flush [Unknown]
  - Palpitations [Unknown]
  - Brain fog [Unknown]
  - Nervousness [Unknown]
  - Amnesia [Unknown]
  - Migraine [Unknown]
  - Illness [Unknown]

NARRATIVE: CASE EVENT DATE: 20231201
